FAERS Safety Report 9220878 (Version 3)
Quarter: 2013Q2

REPORT INFORMATION
  Report Type: Spontaneous
  Country: CA (occurrence: CA)
  Receive Date: 20130409
  Receipt Date: 20130515
  Transmission Date: 20140414
  Serious: Yes (Life-Threatening, Hospitalization)
  Sender: FDA-Public Use
  Company Number: CA-GLAXOSMITHKLINE-A1018767A

PATIENT
  Age: 59 Year
  Sex: Female
  Weight: 47.6 kg

DRUGS (9)
  1. VOTRIENT [Suspect]
     Indication: SARCOMA
     Dosage: 800MG PER DAY
     Route: 048
     Dates: start: 20130212, end: 20130404
  2. FRAGMIN [Concomitant]
  3. DEXAMETHASONE [Concomitant]
  4. PANTOLOC [Concomitant]
  5. MORPHINE [Concomitant]
  6. EFFEXOR [Concomitant]
  7. METOCLOPRAMIDE [Concomitant]
  8. LANSOPRAZOLE [Concomitant]
  9. STEMETIL [Concomitant]
     Indication: NAUSEA
     Dosage: 10MG WEEKLY
     Route: 048
     Dates: start: 2012

REACTIONS (10)
  - Brain neoplasm [Not Recovered/Not Resolved]
  - Atrial fibrillation [Not Recovered/Not Resolved]
  - Speech disorder [Not Recovered/Not Resolved]
  - Dysarthria [Not Recovered/Not Resolved]
  - Slow speech [Not Recovered/Not Resolved]
  - Hypertension [Not Recovered/Not Resolved]
  - Heart rate increased [Not Recovered/Not Resolved]
  - Metastases to central nervous system [Not Recovered/Not Resolved]
  - Brain oedema [Unknown]
  - Malignant neoplasm progression [Not Recovered/Not Resolved]
